FAERS Safety Report 10154930 (Version 1)
Quarter: 2014Q2

REPORT INFORMATION
  Report Type: Spontaneous
  Country: US (occurrence: None)
  Receive Date: 20140505
  Receipt Date: 20140505
  Transmission Date: 20141212
  Serious: Yes (Other)
  Sender: FDA-Public Use
  Company Number: None

PATIENT
  Age: 48 Week
  Sex: Female
  Weight: 65.77 kg

DRUGS (1)
  1. SYMBICORT [Suspect]
     Indication: WHEEZING
     Dosage: 2 PUFFS TWICE DAILY INHALER
     Route: 055
     Dates: start: 20140429, end: 20140430

REACTIONS (9)
  - Wheezing [None]
  - Restlessness [None]
  - Dyspnoea [None]
  - Muscle spasms [None]
  - Burning sensation [None]
  - Rash [None]
  - Cough [None]
  - Breast pain [None]
  - Blood potassium decreased [None]
